FAERS Safety Report 5878728-6 (Version None)
Quarter: 2008Q3

REPORT INFORMATION
  Report Type: 
  Country: None (occurrence: None)
  Receive Date: 20080912
  Receipt Date: 20080903
  Transmission Date: 20090109
  Serious: Yes (Other)
  Sender: FDA-Public Use
  Company Number: US-BAYER-200825995GPV

PATIENT
  Age: 68 Year
  Sex: Male

DRUGS (1)
  1. SORAFENIB [Suspect]
     Indication: RENAL CELL CARCINOMA
     Route: 065

REACTIONS (1)
  - KERATOACANTHOMA [None]
